FAERS Safety Report 8313186-3 (Version None)
Quarter: 2012Q2

REPORT INFORMATION
  Report Type: 
  Country: None (occurrence: None)
  Receive Date: 20120426
  Receipt Date: 20120418
  Transmission Date: 20120825
  Serious: Yes (Hospitalization, Other)
  Sender: FDA-Public Use
  Company Number: US-AMGEN-USASP2012024616

PATIENT
  Age: 59 Year
  Sex: Female

DRUGS (2)
  1. ENBREL [Suspect]
     Indication: FIBROMYALGIA
  2. ENBREL [Suspect]
     Indication: RHEUMATOID ARTHRITIS
     Dosage: UNK UNK, QWK
     Route: 058
     Dates: start: 20060101, end: 20080101

REACTIONS (10)
  - CORONARY ARTERY STENOSIS [None]
  - OEDEMA PERIPHERAL [None]
  - BONE PAIN [None]
  - PAIN IN EXTREMITY [None]
  - FALL [None]
  - DEPRESSION [None]
  - WEIGHT INCREASED [None]
  - MYALGIA [None]
  - LIMB DISCOMFORT [None]
  - SKIN DISCOLOURATION [None]
